FAERS Safety Report 6554125-5 (Version None)
Quarter: 2010Q1

REPORT INFORMATION
  Report Type: 
  Country: None (occurrence: None)
  Receive Date: 20100127
  Receipt Date: 20100114
  Transmission Date: 20100710
  Serious: Yes (Death)
  Sender: FDA-Public Use
  Company Number: GB-TEVA-222046USA

PATIENT
  Sex: Male

DRUGS (3)
  1. NALTREXONE HYDROCHLORIDE [Suspect]
     Route: 030
     Dates: start: 20090304
  2. METHADONE HYDROCHLORIDE [Suspect]
     Dates: end: 20090201
  3. DIAZEPAM [Suspect]
     Dates: start: 20090304

REACTIONS (2)
  - CEREBRAL HAEMORRHAGE [None]
  - SUBARACHNOID HAEMORRHAGE [None]
